FAERS Safety Report 5946671-X (Version None)
Quarter: 2008Q4

REPORT INFORMATION
  Report Type: 
  Country: None (occurrence: None)
  Receive Date: 20081110
  Receipt Date: 20080729
  Transmission Date: 20090506
  Serious: No
  Sender: FDA-Public Use
  Company Number: A0739884A

PATIENT
  Age: 75 Year
  Sex: Male

DRUGS (1)
  1. ALTABAX [Suspect]
     Indication: FUNGAL INFECTION
     Dosage: 1APP TWICE PER DAY
     Route: 061
     Dates: start: 20080725, end: 20080726

REACTIONS (3)
  - APPLICATION SITE INFECTION [None]
  - BURNING SENSATION [None]
  - ERYTHEMA [None]
